FAERS Safety Report 7208374-3 (Version None)
Quarter: 2011Q1

REPORT INFORMATION
  Report Type: 
  Country: None (occurrence: None)
  Receive Date: 20110104
  Receipt Date: 20101222
  Transmission Date: 20110831
  Serious: Yes (Other)
  Sender: FDA-Public Use
  Company Number: PHHY2010US71902

PATIENT
  Sex: Female

DRUGS (15)
  1. PREDNISONE [Concomitant]
  2. COLACE [Concomitant]
  3. PRO-AIR (PROCATEROL HYDROCHLORIDE) [Concomitant]
  4. VITAMIN D [Concomitant]
  5. DILTIAZEM [Concomitant]
  6. ASCORBIC ACID [Concomitant]
  7. ZOLPIDEM TARTRATE [Concomitant]
  8. ADVAIR [Concomitant]
  9. ALBUTEROL SULFATE [Concomitant]
  10. PLAQUCINEL [Concomitant]
  11. VICODIN [Concomitant]
  12. AMBIEN [Concomitant]
  13. LOVASAL [Concomitant]
  14. CALCIUM [Concomitant]
  15. RECLAST [Suspect]
     Indication: OSTEOPOROSIS
     Dosage: UNK
     Dates: start: 20101019

REACTIONS (5)
  - WALKING AID USER [None]
  - DRUG INEFFECTIVE [None]
  - SPINAL FRACTURE [None]
  - MOVEMENT DISORDER [None]
  - PAIN [None]
